FAERS Safety Report 9989323 (Version 2)
Quarter: 2014Q1

REPORT INFORMATION
  Report Type: Spontaneous
  Country: US (occurrence: US)
  Receive Date: 20140310
  Receipt Date: 20140331
  Transmission Date: 20141002
  Serious: No
  Sender: FDA-Public Use
  Company Number: US-009507513-1402USA010437

PATIENT
  Age: 70 Year
  Sex: Female
  Weight: 41.72 kg

DRUGS (1)
  1. ZETIA [Suspect]
     Indication: BLOOD CHOLESTEROL INCREASED
     Dosage: 1 A DAY
     Route: 048
     Dates: start: 20131230, end: 201402

REACTIONS (1)
  - Alopecia [Unknown]
